FAERS Safety Report 22262704 (Version 1)
Quarter: 2023Q2

REPORT INFORMATION
  Report Type: Spontaneous
  Country: CN (occurrence: CN)
  Receive Date: 20230428
  Receipt Date: 20230428
  Transmission Date: 20230721
  Serious: Yes (Hospitalization)
  Sender: FDA-Public Use
  Company Number: CN-STRIDES ARCOLAB LIMITED-2023SP005975

PATIENT
  Age: 7 Year
  Sex: Female

DRUGS (7)
  1. PREDNISOLONE [Suspect]
     Active Substance: PREDNISOLONE
     Indication: Immunosuppressant drug therapy
     Dosage: UNK
     Route: 065
  2. PREDNISOLONE [Suspect]
     Active Substance: PREDNISOLONE
     Indication: Nephrotic syndrome
     Dosage: 2 MILLIGRAM/KILOGRAM (PER DAY)
     Route: 048
  3. METHYLPREDNISOLONE [Suspect]
     Active Substance: METHYLPREDNISOLONE
     Indication: Immunosuppressant drug therapy
     Dosage: 20 MILLIGRAM/KILOGRAM (PER DAY) (PULSE THERAPY ) (OF BODY WEIGHT)
     Route: 042
  4. METHYLPREDNISOLONE [Suspect]
     Active Substance: METHYLPREDNISOLONE
     Indication: Nephrotic syndrome
  5. CYCLOPHOSPHAMIDE [Suspect]
     Active Substance: CYCLOPHOSPHAMIDE
     Indication: Immunosuppressant drug therapy
     Dosage: 0.5 GRAM PER SQUARE METRE, 2 TIMES A WEEK (PULSE THERAPY)
     Route: 042
  6. CYCLOPHOSPHAMIDE [Suspect]
     Active Substance: CYCLOPHOSPHAMIDE
     Indication: Nephrotic syndrome
  7. RITUXIMAB [Suspect]
     Active Substance: RITUXIMAB
     Indication: Proteinuria
     Dosage: 375 MILLIGRAM/SQ. METER, SINGLE
     Route: 042

REACTIONS (4)
  - Respiratory failure [Recovered/Resolved]
  - Acute kidney injury [Unknown]
  - Pneumocystis jirovecii pneumonia [Recovered/Resolved]
  - Therapy partial responder [Unknown]
